FAERS Safety Report 5381170-8 (Version None)
Quarter: 2007Q3

REPORT INFORMATION
  Report Type: 
  Country: None (occurrence: None)
  Receive Date: 20070706
  Receipt Date: 20070625
  Transmission Date: 20080115
  Serious: Yes (Other)
  Sender: FDA-Public Use
  Company Number: US-PFIZER INC-2007052250

PATIENT
  Sex: Female

DRUGS (5)
  1. DILANTIN [Suspect]
     Indication: EPILEPSY
  2. PHENYTOIN [Suspect]
  3. TEGRETOL [Suspect]
  4. HERBAL PREPARATION [Suspect]
  5. CLONAZEPAM [Concomitant]

REACTIONS (9)
  - ANTICONVULSANT DRUG LEVEL DECREASED [None]
  - ANTICONVULSANT DRUG LEVEL INCREASED [None]
  - BONE PAIN [None]
  - BRAIN OPERATION [None]
  - CONVULSION [None]
  - HYPOAESTHESIA [None]
  - ILL-DEFINED DISORDER [None]
  - OVERDOSE [None]
  - PRURITUS [None]
